FAERS Safety Report 24611385 (Version 3)
Quarter: 2025Q4

REPORT INFORMATION
  Report Type: Report from Study
  Country: US (occurrence: None)
  Receive Date: 20241113
  Receipt Date: 20251206
  Transmission Date: 20260117
  Serious: Yes (Other)
  Sender: UCB
  Company Number: US-UCBSA-2024057859

PATIENT
  Age: 6 Year
  Weight: 15.9 kg

DRUGS (2)
  1. FENFLURAMINE [Suspect]
     Active Substance: FENFLURAMINE
     Indication: Product used for unknown indication
     Dosage: 7.92 MILLIGRAM PER DAY
  2. FENFLURAMINE [Suspect]
     Active Substance: FENFLURAMINE
     Dosage: 0.75 MILLIGRAM PER KILOGRAM PER DAY TOTALLY 11 MILLIGRAM PER DAY

REACTIONS (4)
  - Pericardial effusion [Unknown]
  - Left-to-right cardiac shunt [Unknown]
  - Tracheostomy [Unknown]
  - Atrial septal defect [Unknown]
